FAERS Safety Report 25886251 (Version 7)
Quarter: 2025Q4

REPORT INFORMATION
  Report Type: Spontaneous
  Country: US (occurrence: US)
  Receive Date: 20251006
  Receipt Date: 20251231
  Transmission Date: 20260117
  Serious: Yes (Hospitalization, Other)
  Sender: PFIZER
  Company Number: US-PFIZER INC-202500197121

PATIENT
  Age: 28 Year
  Sex: Female
  Weight: 89.36 kg

DRUGS (2)
  1. LIDOCAINE HYDROCHLORIDE [Suspect]
     Active Substance: LIDOCAINE HYDROCHLORIDE
     Indication: Local anaesthesia
     Dosage: 10ML OF LIDOCAINE 2% GIVEN VAGINAL CERVICAL BLOCK. 50ML VIAL (IT WAS JUST ONE DOSE)
     Route: 067
     Dates: start: 20250917
  2. LIDOCAINE HYDROCHLORIDE [Suspect]
     Active Substance: LIDOCAINE HYDROCHLORIDE
     Indication: Uterine dilation and curettage

REACTIONS (2)
  - Generalised tonic-clonic seizure [Unknown]
  - Loss of consciousness [Unknown]

NARRATIVE: CASE EVENT DATE: 20250101
